FAERS Safety Report 16715129 (Version 1)
Quarter: 2019Q3

REPORT INFORMATION
  Report Type: Spontaneous
  Country: DE (occurrence: DE)
  Receive Date: 20190819
  Receipt Date: 20190819
  Transmission Date: 20191005
  Serious: Yes (Hospitalization)
  Sender: FDA-Public Use
  Company Number: DE-PFIZER INC-2019350466

PATIENT
  Age: 91 Year
  Sex: Female

DRUGS (4)
  1. METAMIZOL [Concomitant]
     Active Substance: METAMIZOLE SODIUM
     Dosage: 500 MG, 4X/DAY, 1-1-1-1
  2. PROTHIPENDYL [Interacting]
     Active Substance: PROTHIPENDYL
     Dosage: 40 MG, 1X/DAY, 0-0-0-1
  3. SERTRALINE HCL [Suspect]
     Active Substance: SERTRALINE HYDROCHLORIDE
     Dosage: 50 MG, 1X/DAY, 1-0-0-0
  4. OXYCODON [Concomitant]
     Active Substance: OXYCODONE
     Dosage: 10 MG, 2X/DAY, 1-0-1-0

REACTIONS (4)
  - Labelled drug-drug interaction medication error [Unknown]
  - Fall [Unknown]
  - Wound [Unknown]
  - Haematoma [Unknown]
